FAERS Safety Report 22269059 (Version 1)
Quarter: 2023Q2

REPORT INFORMATION
  Report Type: Spontaneous
  Country: US (occurrence: US)
  Receive Date: 20230501
  Receipt Date: 20230501
  Transmission Date: 20230722
  Serious: Yes (Hospitalization, Other)
  Sender: FDA-Public Use
  Company Number: US-BRISTOL-MYERS SQUIBB COMPANY-2023-057249

PATIENT
  Age: 74 Year
  Sex: Female

DRUGS (1)
  1. POMALYST [Suspect]
     Active Substance: POMALIDOMIDE
     Indication: Prophylaxis
     Dosage: TAKE 1 CAPSULE BY MOUTH WHOLE
     Route: 048
     Dates: start: 20220331

REACTIONS (2)
  - Pain [Not Recovered/Not Resolved]
  - Recurrent cancer [Not Recovered/Not Resolved]
